FAERS Safety Report 21356845 (Version 2)
Quarter: 2022Q3

REPORT INFORMATION
  Report Type: Spontaneous
  Country: ES (occurrence: ES)
  Receive Date: 20220920
  Receipt Date: 20220922
  Transmission Date: 20221027
  Serious: Yes (Hospitalization, Disabling, Other)
  Sender: FDA-Public Use
  Company Number: None

PATIENT
  Age: 77 Year
  Sex: Male

DRUGS (1)
  1. OPDIVO [Suspect]
     Active Substance: NIVOLUMAB
     Indication: Mesothelioma
     Route: 042
     Dates: start: 20220322, end: 20220519

REACTIONS (7)
  - Ataxia [Recovered/Resolved with Sequelae]
  - Diplopia [Recovered/Resolved with Sequelae]
  - Dysarthria [Recovered/Resolved with Sequelae]
  - Hashimoto^s encephalopathy [Recovered/Resolved with Sequelae]
  - Bradyphrenia [Recovered/Resolved with Sequelae]
  - Dysphagia [Not Recovered/Not Resolved]
  - Intentional product use issue [Unknown]

NARRATIVE: CASE EVENT DATE: 20220322
